FAERS Safety Report 9722894 (Version 2)
Quarter: 2014Q1

REPORT INFORMATION
  Report Type: Spontaneous
  Country: CN (occurrence: CN)
  Receive Date: 20131202
  Receipt Date: 20140120
  Transmission Date: 20141002
  Serious: Yes (Other)
  Sender: FDA-Public Use
  Company Number: CN-NOVOPROD-393326

PATIENT
  Age: 23 Year
  Sex: Male
  Weight: 87 kg

DRUGS (9)
  1. VICTOZA [Suspect]
     Indication: TYPE 2 DIABETES MELLITUS
     Dosage: 0.6 MG, QD (IN FIRST WEEK)
     Route: 058
     Dates: start: 20120816
  2. VICTOZA [Suspect]
     Dosage: 1.2 MG, QD (IN SECOND WEEK)
     Route: 058
     Dates: end: 20121031
  3. VICTOZA [Suspect]
     Dosage: UNK
     Route: 058
     Dates: start: 201212
  4. LEVEMIR [Concomitant]
     Indication: TYPE 2 DIABETES MELLITUS
     Dosage: 12 U, QD (BEFORE SLEEPING)
     Route: 058
     Dates: start: 20120810, end: 20130830
  5. STARLIX [Concomitant]
     Indication: TYPE 2 DIABETES MELLITUS
     Dosage: 120 MG, TID
     Route: 048
     Dates: start: 20120803, end: 20130919
  6. ACTOS [Concomitant]
     Indication: TYPE 2 DIABETES MELLITUS
     Dosage: 30MG IN THE MORNING
     Route: 048
     Dates: start: 20120803, end: 20130919
  7. PIDOTIMOD [Concomitant]
     Dosage: 0.8 G, QD
     Route: 048
     Dates: start: 20120803, end: 20130830
  8. ILAPRAZOLE [Concomitant]
     Dosage: 5 MG, BID
     Route: 048
     Dates: start: 20120803, end: 20130830
  9. CALCIUM DOBESILATE [Concomitant]
     Dosage: 0.5 G, TID
     Route: 048
     Dates: start: 20120803, end: 20130830

REACTIONS (3)
  - Alopecia [Recovered/Resolved]
  - Dandruff [Unknown]
  - Malaise [Unknown]
